FAERS Safety Report 7020897-9 (Version None)
Quarter: 2010Q3

REPORT INFORMATION
  Report Type: 
  Country: None (occurrence: None)
  Receive Date: 20100929
  Receipt Date: 20100918
  Transmission Date: 20110219
  Serious: Yes (Death, Hospitalization)
  Sender: FDA-Public Use
  Company Number: TW-BAXTER-2010BH023739

PATIENT
  Sex: Female

DRUGS (4)
  1. DIANEAL [Suspect]
     Indication: PERITONEAL DIALYSIS
     Route: 033
     Dates: start: 20061001
  2. DIANEAL [Suspect]
     Route: 033
     Dates: start: 20061001
  3. DIANEAL [Suspect]
     Indication: PERITONEAL DIALYSIS
     Route: 033
     Dates: start: 20061001
  4. DIANEAL [Suspect]
     Route: 033
     Dates: start: 20061001

REACTIONS (3)
  - INFECTION [None]
  - MULTI-ORGAN FAILURE [None]
  - SEPSIS [None]
